FAERS Safety Report 9705643 (Version 2)
Quarter: 2013Q4

REPORT INFORMATION
  Report Type: Spontaneous
  Country: US (occurrence: US)
  Receive Date: 20131122
  Receipt Date: 20131122
  Transmission Date: 20140711
  Serious: No
  Sender: FDA-Public Use
  Company Number: US-GILEAD-2008-0017077

PATIENT
  Sex: Female
  Weight: 52.16 kg

DRUGS (8)
  1. LETAIRIS [Suspect]
     Indication: PULMONARY ARTERIAL HYPERTENSION
     Route: 048
  2. REVATIO [Concomitant]
  3. ALBUTEROL SULFATE [Concomitant]
     Indication: BRONCHOSPASM
     Route: 055
  4. ADVAIR 250/50 [Concomitant]
     Route: 055
  5. FUROSEMIDE [Concomitant]
  6. PREDNISONE [Concomitant]
     Route: 048
  7. PLAQUENIL [Concomitant]
  8. VICODIN [Concomitant]

REACTIONS (3)
  - Cough [None]
  - Dyspnoea exertional [None]
  - Nasal congestion [None]
